FAERS Safety Report 9999814 (Version 2)
Quarter: 2014Q1

REPORT INFORMATION
  Report Type: Spontaneous
  Country: JP (occurrence: JP)
  Receive Date: 20140312
  Receipt Date: 20140312
  Transmission Date: 20141002
  Serious: Yes (Other)
  Sender: FDA-Public Use
  Company Number: JP-PFIZER INC-2014038628

PATIENT
  Age: 66 Year
  Sex: Female

DRUGS (6)
  1. ZOSYN [Suspect]
     Indication: PNEUMONIA
     Dosage: 4.5 G, 3X/DAY
     Route: 041
     Dates: start: 20140125, end: 20140202
  2. AMINOLEBAN [Concomitant]
     Dosage: 500 ML, DAILY
     Route: 041
  3. LASIX [Concomitant]
     Indication: ASCITES
     Dosage: 20 MG, DAILY
     Route: 048
     Dates: start: 20140125, end: 20140130
  4. AMLODIPINE [Concomitant]
     Route: 048
  5. OMEPRAL [Concomitant]
     Dosage: UNK
  6. ALBUMIN [Concomitant]
     Dosage: UNK
     Route: 041

REACTIONS (1)
  - Hypernatraemia [Recovered/Resolved]
